FAERS Safety Report 15106204 (Version 1)
Quarter: 2018Q3

REPORT INFORMATION
  Report Type: Report from Study
  Country: None (occurrence: DE)
  Receive Date: 20180704
  Receipt Date: 20180704
  Transmission Date: 20181010
  Serious: Yes (Hospitalization)
  Sender: FDA-Public Use
  Company Number: DE-ABBVIE-18S-062-2406918-00

PATIENT
  Age: 78 Year
  Sex: Female

DRUGS (2)
  1. DUODOPA [Suspect]
     Active Substance: CARBIDOPA\LEVODOPA
     Indication: PARKINSON^S DISEASE
     Dosage: MD: 4.6ML, CRD: 1.4ML/H, ED: 0.4ML
     Route: 050
     Dates: start: 20131011, end: 201806
  2. DUODOPA [Suspect]
     Active Substance: CARBIDOPA\LEVODOPA
     Dosage: MD: 4.6ML, CRD: 1.4ML/H, ED: 0.4ML
     Route: 050
     Dates: start: 201806

REACTIONS (3)
  - Pulmonary oedema [Recovered/Resolved]
  - Device issue [Recovered/Resolved]
  - Hyperkinesia [Not Recovered/Not Resolved]

NARRATIVE: CASE EVENT DATE: 201806
